FAERS Safety Report 9314528 (Version 5)
Quarter: 2014Q2

REPORT INFORMATION
  Report Type: Spontaneous
  Country: US (occurrence: US)
  Receive Date: 20130529
  Receipt Date: 20140623
  Transmission Date: 20141212
  Serious: No
  Sender: FDA-Public Use
  Company Number: US-PFIZER INC-2013163110

PATIENT
  Age: 62 Year
  Sex: Female

DRUGS (4)
  1. INLYTA [Suspect]
     Indication: RENAL CANCER METASTATIC
     Dosage: 5 MG, 2X/DAY
     Dates: start: 20120525
  2. INLYTA [Suspect]
     Dosage: 5 MG, 2X/DAY
     Dates: start: 20121122
  3. INLYTA [Suspect]
     Dosage: 5 MG, 2X/DAY
     Route: 048
     Dates: start: 20140610
  4. INLYTA [Suspect]
     Dosage: UNK

REACTIONS (9)
  - Stomatitis [Unknown]
  - Diarrhoea [Unknown]
  - Glossodynia [Unknown]
  - Nausea [Unknown]
  - Vomiting [Unknown]
  - Sluggishness [Unknown]
  - Weight decreased [Unknown]
  - Dysphonia [Unknown]
  - Fatigue [Unknown]
